FAERS Safety Report 7570982-8 (Version None)
Quarter: 2011Q2

REPORT INFORMATION
  Report Type: 
  Country: None (occurrence: None)
  Receive Date: 20110624
  Receipt Date: 20110613
  Transmission Date: 20111010
  Serious: Yes (Hospitalization)
  Sender: FDA-Public Use
  Company Number: GB-ROCHE-718793

PATIENT
  Sex: Male

DRUGS (8)
  1. MOVIPREP [Concomitant]
     Indication: CONSTIPATION
     Dosage: DATE OF MOST RECENT DOSE: 24 AUGUST 2010
     Route: 048
  2. METFORMIN HCL [Concomitant]
     Route: 048
  3. PIOGLITAZONE [Concomitant]
     Route: 048
  4. SIMVASTATIN [Concomitant]
     Indication: HYPERCHOLESTEROLAEMIA
     Route: 048
  5. BEVACIZUMAB [Suspect]
     Indication: COLON CANCER
     Dosage: DATE OF LAST DOSE PRIOR TO SAE: 23 JUNE 2010, CURRENT CYCLE 16:COMPLETED; FORM -INFUSION
     Route: 042
     Dates: start: 20090728, end: 20100623
  6. QUININE BISULPHATE [Concomitant]
     Route: 048
  7. CAPECITABINE [Suspect]
     Indication: COLON CANCER
     Dosage: CURRENT CYCLE: COMPLETED, DATE MOST RECENT DOSE GIVEN: 30 DECEMBER 2009; FORM PER PROTOCOL
     Route: 048
     Dates: start: 20090728, end: 20091230
  8. GLICLAZIDE [Concomitant]
     Route: 048

REACTIONS (3)
  - INTESTINAL DILATATION [None]
  - ENTERITIS INFECTIOUS [None]
  - DIVERTICULAR PERFORATION [None]
